FAERS Safety Report 6515448-9 (Version None)
Quarter: 2009Q4

REPORT INFORMATION
  Report Type: 
  Country: None (occurrence: None)
  Receive Date: 20091223
  Receipt Date: 20091214
  Transmission Date: 20100525
  Serious: Yes (Hospitalization)
  Sender: FDA-Public Use
  Company Number: PHEH2009US12937

PATIENT
  Sex: Female
  Weight: 55.782 kg

DRUGS (7)
  1. RECLAST [Suspect]
     Indication: OSTEOPOROSIS
     Dosage: 5MG/100ML ONCE YEARLY
     Dates: start: 20091001
  2. VESICARE [Concomitant]
     Route: 048
  3. ARIMIDEX [Concomitant]
     Dosage: 1 DF PER DAY
     Route: 048
  4. VYTORIN [Concomitant]
     Dosage: 10/40 MG PER DAY
     Route: 048
  5. ZOLOFT [Concomitant]
     Dosage: 1 DF PER DAY
     Route: 048
  6. TRAZODONE HCL [Concomitant]
     Dosage: 1 DF PER DAY
     Route: 048
  7. LASIX [Concomitant]
     Dosage: 1 DF PER DAY
     Route: 048

REACTIONS (9)
  - CHEST PAIN [None]
  - CREATININE RENAL CLEARANCE DECREASED [None]
  - DYSPNOEA [None]
  - ERYTHEMA [None]
  - INFLUENZA LIKE ILLNESS [None]
  - NAUSEA [None]
  - PAIN IN JAW [None]
  - PRURITUS [None]
  - RASH PRURITIC [None]
